FAERS Safety Report 22652448 (Version 3)
Quarter: 2024Q2

REPORT INFORMATION
  Report Type: Report from Study
  Country: KR (occurrence: KR)
  Receive Date: 20230629
  Receipt Date: 20240614
  Transmission Date: 20240716
  Serious: Yes (Death, Hospitalization, Other)
  Sender: FDA-Public Use
  Company Number: KR-CELLTRION INC.-2023KR011303

PATIENT

DRUGS (36)
  1. INVESTIGATIONAL BIOSIMILARS [Suspect]
     Active Substance: INVESTIGATIONAL BIOSIMILARS
     Indication: Non-small cell lung cancer
     Dosage: 268.2 MG IV Q3WK
     Route: 042
     Dates: start: 20230403, end: 20230517
  2. INVESTIGATIONAL BIOSIMILARS [Suspect]
     Active Substance: INVESTIGATIONAL BIOSIMILARS
     Dosage: 6 MG/KG, Q3WK
     Route: 042
  3. NERATINIB [Suspect]
     Active Substance: NERATINIB
     Indication: Product used for unknown indication
     Dosage: 80 MG, QD
     Route: 065
     Dates: end: 20230522
  4. NERATINIB [Suspect]
     Active Substance: NERATINIB
     Dosage: 240 MG, QD
  5. OXYCODONE [Concomitant]
     Active Substance: OXYCODONE\OXYCODONE HYDROCHLORIDE
     Indication: Neck pain
     Dosage: 2 TAB, PRN
     Route: 048
     Dates: start: 20230118
  6. ACETAMINOPHEN [Concomitant]
     Active Substance: ACETAMINOPHEN
     Indication: Neck pain
     Dosage: 650 MG, PRN
     Route: 048
     Dates: start: 20230321
  7. FENTANYL [Concomitant]
     Active Substance: FENTANYL\FENTANYL CITRATE
     Indication: Neck pain
     Dosage: 200 MCG, PRN
     Route: 048
     Dates: start: 20230319
  8. MEGESTROL [Concomitant]
     Active Substance: MEGESTROL
     Indication: Decreased appetite
     Dosage: 40 MG, PRN
     Route: 048
     Dates: start: 20230322
  9. MEGESTROL [Concomitant]
     Active Substance: MEGESTROL
     Indication: Prophylaxis
  10. MAGNESIUM OXIDE [Concomitant]
     Active Substance: MAGNESIUM OXIDE
     Indication: Constipation prophylaxis
     Dosage: 1 CAP, PRN
     Route: 048
     Dates: start: 20230517
  11. DULACKHAN EASY [Concomitant]
     Indication: Constipation prophylaxis
     Dosage: 15 ML, PRN
     Route: 048
     Dates: start: 20230517
  12. WINUF [Concomitant]
     Indication: Pneumonia
     Dosage: 1 BAG, QD
     Route: 042
     Dates: start: 20230527
  13. AMBROXOL [Concomitant]
     Active Substance: AMBROXOL
     Indication: Pneumonia
     Dosage: 1 AMP, QD
     Route: 042
     Dates: start: 20230527
  14. AMBROXOL [Concomitant]
     Active Substance: AMBROXOL
     Dosage: 15MG/2ML
     Dates: start: 20230527
  15. CEFTRIAXONE SODIUM [Concomitant]
     Active Substance: CEFTRIAXONE SODIUM
     Indication: Pneumonia
     Dosage: 2 G, QD
     Route: 042
     Dates: start: 20230527
  16. TROLAC [Concomitant]
     Indication: Pain prophylaxis
     Dosage: 1 MG, QD
     Route: 042
     Dates: start: 20230527
  17. NALOXONE HYDROCHLORIDE\OXYCODONE HYDROCHLORIDE [Concomitant]
     Active Substance: NALOXONE HYDROCHLORIDE\OXYCODONE HYDROCHLORIDE
     Indication: Neck pain
     Dosage: 1 TAB PRN
     Route: 048
     Dates: start: 20230206
  18. TAZOPERAN [Concomitant]
     Indication: Pneumonia
     Dosage: 4.5 G 1 VIAL
     Route: 042
     Dates: start: 20230619, end: 20230620
  19. TAZOPERAN [Concomitant]
     Dosage: 1 VIAL Q6H IV
     Route: 042
     Dates: start: 20230618, end: 20230620
  20. MORPHINE SULFATE [Concomitant]
     Active Substance: MORPHINE SULFATE
     Indication: Pain
     Dosage: 5 MG, QD 1 VIAL
     Route: 042
     Dates: start: 20230619, end: 20230620
  21. MORPHINE SULFATE [Concomitant]
     Active Substance: MORPHINE SULFATE
     Dosage: 100 MG, QD 1 VIAL
     Route: 042
     Dates: start: 20230610, end: 20230620
  22. MORPHINE SULFATE [Concomitant]
     Active Substance: MORPHINE SULFATE
     Dosage: 1VIAL QD CIV
     Dates: start: 20230619, end: 20230620
  23. OLIMEL E [Concomitant]
     Active Substance: AMINO ACIDS\DEXTROSE\ELECTROLYTES NOS\SOYBEAN OIL
     Indication: Nutritional supplementation
     Dosage: 1000 ML, QD 1 BAG
     Route: 042
     Dates: start: 20230620, end: 20230620
  24. DEXTROSE + NAK [Concomitant]
     Dosage: 1L 1BAG QD
     Route: 042
     Dates: start: 20230619, end: 20230619
  25. NEXIUM [Concomitant]
     Active Substance: ESOMEPRAZOLE MAGNESIUM
     Indication: Prophylaxis
     Dosage: 1 VIAL, QD
     Route: 042
     Dates: start: 20230618, end: 20230620
  26. ENOXAPARIN SODIUM [Concomitant]
     Active Substance: ENOXAPARIN SODIUM
     Indication: Prophylaxis
     Dosage: 90 MG, QD
     Route: 058
     Dates: start: 20230618, end: 20230619
  27. REMIVA [Concomitant]
     Indication: Pain
     Dosage: 2 VIAL QD IV
     Route: 042
     Dates: start: 20230618, end: 20230619
  28. FENTORA [Concomitant]
     Active Substance: FENTANYL CITRATE
     Indication: Pain
     Dosage: 200 MCG 1 TAB, PRN
     Dates: start: 20230618, end: 20230620
  29. ACETAMINOPHEN [Concomitant]
     Active Substance: ACETAMINOPHEN
     Indication: Pyrexia
     Dosage: 1 BAG, PRN
     Route: 042
     Dates: start: 20230618, end: 20230620
  30. OXYCODONE HYDROCHLORIDE [Concomitant]
     Active Substance: OXYCODONE HYDROCHLORIDE
     Indication: Pain
     Dosage: 2 TAB, QID
     Route: 048
     Dates: start: 20230619, end: 20230619
  31. POTASSIUM CHLORIDE [Concomitant]
     Active Substance: POTASSIUM CHLORIDE
     Dosage: 1 BAG, QD
     Route: 042
     Dates: start: 20230619, end: 20230619
  32. DEXTROSE [Concomitant]
     Active Substance: DEXTROSE\DEXTROSE MONOHYDRATE
     Indication: Fluid replacement
     Dosage: 1 BAG, QD
     Route: 042
     Dates: start: 20230619, end: 20230619
  33. MORPHINE SULFATE [Concomitant]
     Active Substance: MORPHINE SULFATE
     Indication: Pain
     Dosage: 1 VIAL PRN IV
     Route: 042
     Dates: start: 20230619, end: 20230619
  34. SODIUM CHLORIDE [Concomitant]
     Active Substance: SODIUM CHLORIDE
     Indication: Fluid replacement
     Dosage: 1 BAG, QD
     Route: 042
     Dates: start: 20230618, end: 20230618
  35. SODIUM CHLORIDE [Concomitant]
     Active Substance: SODIUM CHLORIDE
     Indication: Fluid replacement
     Dosage: 1 BAG, QD
     Route: 042
     Dates: start: 20230618, end: 20230618
  36. NALOXONE HYDROCHLORIDE\OXYCODONE HYDROCHLORIDE [Concomitant]
     Active Substance: NALOXONE HYDROCHLORIDE\OXYCODONE HYDROCHLORIDE
     Indication: Neck pain
     Dosage: PRN
     Route: 048
     Dates: start: 20230319

REACTIONS (5)
  - Disease progression [Fatal]
  - Dyspnoea [Fatal]
  - Pneumonia [Not Recovered/Not Resolved]
  - Vomiting [Unknown]
  - Intentional product use issue [Unknown]

NARRATIVE: CASE EVENT DATE: 20230508
